FAERS Safety Report 11857633 (Version 1)
Quarter: 2015Q4

REPORT INFORMATION
  Report Type: Spontaneous
  Country: US (occurrence: None)
  Receive Date: 20151221
  Receipt Date: 20151221
  Transmission Date: 20160305
  Serious: Yes (Disabling, Other)
  Sender: FDA-Public Use
  Company Number: None

PATIENT
  Age: 31 Year
  Sex: Female
  Weight: 70.31 kg

DRUGS (4)
  1. NOVOLOG INSULIN [Concomitant]
  2. MULTIVITAMIN [Concomitant]
     Active Substance: VITAMINS
  3. MICONAZOLE 1 [Suspect]
     Active Substance: MICONAZOLE NITRATE
     Indication: FUNGAL INFECTION
     Dates: start: 20151220, end: 20151220
  4. SYNTHROID [Concomitant]
     Active Substance: LEVOTHYROXINE SODIUM

REACTIONS (8)
  - Application site burn [None]
  - Impaired work ability [None]
  - Cold sweat [None]
  - Palpitations [None]
  - Pruritus [None]
  - Burning sensation [None]
  - Hot flush [None]
  - Application site discharge [None]

NARRATIVE: CASE EVENT DATE: 20151220
